FAERS Safety Report 5256608-7 (Version None)
Quarter: 2007Q1

REPORT INFORMATION
  Report Type: 
  Country: None (occurrence: None)
  Receive Date: 20070306
  Receipt Date: 20070223
  Transmission Date: 20070707
  Serious: Yes (Other)
  Sender: FDA-Public Use
  Company Number: FR-PFIZER INC-2007001337

PATIENT
  Sex: Male

DRUGS (4)
  1. LYRICA [Suspect]
     Indication: HYPERAESTHESIA
  2. ATENOLOL [Concomitant]
  3. CANDESARTAN CILEXETIL [Concomitant]
  4. STRUCTUM [Concomitant]

REACTIONS (3)
  - BURNING SENSATION [None]
  - OEDEMA PERIPHERAL [None]
  - RESPIRATORY DISORDER [None]
